FAERS Safety Report 5849839-6 (Version None)
Quarter: 2008Q3

REPORT INFORMATION
  Report Type: 
  Country: None (occurrence: None)
  Receive Date: 20080818
  Receipt Date: 20080818
  Transmission Date: 20090109
  Serious: Yes (Life-Threatening)
  Sender: FDA-Public Use
  Company Number: None

PATIENT
  Age: 45 Year
  Sex: Female
  Weight: 106.1417 kg

DRUGS (4)
  1. LISINOPRIL [Suspect]
     Indication: HYPERTENSION
     Dosage: 2.5MG 1/DAY PO
     Route: 048
     Dates: start: 20060701, end: 20080813
  2. HYDROCHLOROTHIAZIDE [Concomitant]
  3. WELLBUTRIN XL [Concomitant]
  4. CYMBALTA [Concomitant]

REACTIONS (3)
  - ADVERSE DRUG REACTION [None]
  - LIP SWELLING [None]
  - NASAL CONGESTION [None]
